FAERS Safety Report 18223821 (Version 1)
Quarter: 2020Q3

REPORT INFORMATION
  Report Type: Spontaneous
  Country: US (occurrence: US)
  Receive Date: 20200902
  Receipt Date: 20200902
  Transmission Date: 20201103
  Serious: Yes (Death)
  Sender: FDA-Public Use
  Company Number: US-FRESENIUS MEDICAL CARE RENAL THERAPIES GROUP-FMC-2009-001019

PATIENT
  Age: 71 Year
  Sex: Male
  Weight: 80 kg

DRUGS (21)
  1. DELFLEX WITH DEXTROSE 4.25% LOW MAGNESIUM LOW CALCIUM [Suspect]
     Active Substance: CALCIUM CHLORIDE\DEXTROSE\MAGNESIUM CHLORIDE\SODIUM CHLORIDE\SODIUM LACTATE
     Indication: END STAGE RENAL DISEASE
     Dosage: FILL VOLUME 2000 ML, 5 MANUAL EXCHANGES, NO LAST FILL, NO DAYTIME EXCHANGE, DWELL TIME 3.0 HOURS, SI
     Route: 033
     Dates: start: 20200803
  2. RENVELA [Concomitant]
     Active Substance: SEVELAMER CARBONATE
  3. DELFLEX WITH DEXTROSE 1.5% LOW MAGNESIUM LOW CALCIUM [Suspect]
     Active Substance: CALCIUM CHLORIDE\DEXTROSE\MAGNESIUM CHLORIDE\SODIUM CHLORIDE\SODIUM LACTATE
     Indication: END STAGE RENAL DISEASE
     Dosage: FILL VOLUME 2000 ML, 5 MANUAL EXCHANGES, NO LAST FILL, NO DAYTIME EXCHANGE, DWELL TIME 3.0 HOURS,
     Route: 033
     Dates: start: 20200803
  4. LANTUS [Concomitant]
     Active Substance: INSULIN GLARGINE
  5. CILOSTAZOL. [Concomitant]
     Active Substance: CILOSTAZOL
  6. VITAMIN D3 [Concomitant]
     Active Substance: CHOLECALCIFEROL
  7. DONEPEZIL. [Concomitant]
     Active Substance: DONEPEZIL
  8. LIPITOR [Concomitant]
     Active Substance: ATORVASTATIN CALCIUM
  9. MIRALAX [Concomitant]
     Active Substance: POLYETHYLENE GLYCOL 3350
  10. PLAVIX [Concomitant]
     Active Substance: CLOPIDOGREL BISULFATE
  11. CALCITRIOL. [Concomitant]
     Active Substance: CALCITRIOL
  12. CHLORPROMAZINE. [Concomitant]
     Active Substance: CHLORPROMAZINE
  13. FIBERCON [Concomitant]
     Active Substance: CALCIUM POLYCARBOPHIL
  14. HUMALOG [Concomitant]
     Active Substance: INSULIN LISPRO
  15. LACTULOSE. [Concomitant]
     Active Substance: LACTULOSE
  16. DELFLEX WITH DEXTROSE 2.5% LOW MAGNESIUM LOW CALCIUM [Suspect]
     Active Substance: CALCIUM CHLORIDE\DEXTROSE\MAGNESIUM CHLORIDE\SODIUM CHLORIDE\SODIUM LACTATE
     Indication: END STAGE RENAL DISEASE
     Dosage: FILL VOLUME 2000 ML, 5 MANUAL EXCHANGES, NO LAST FILL, NO DAYTIME EXCHANGE, DWELL TIME 3.0 HOURS, SI
     Route: 033
     Dates: start: 20200803
  17. COLACE [Concomitant]
     Active Substance: DOCUSATE SODIUM
  18. PEPCID [Concomitant]
     Active Substance: FAMOTIDINE
  19. ASPIRIN. [Concomitant]
     Active Substance: ASPIRIN
  20. GENTAMYCIN [Concomitant]
     Active Substance: GENTAMICIN
  21. TOPROL XL [Concomitant]
     Active Substance: METOPROLOL SUCCINATE

REACTIONS (1)
  - Cardiac arrest [Fatal]
